FAERS Safety Report 5338170-3 (Version None)
Quarter: 2007Q2

REPORT INFORMATION
  Report Type: 
  Country: None (occurrence: None)
  Receive Date: 20070327
  Receipt Date: 20070220
  Transmission Date: 20071010
  Serious: No
  Sender: FDA-Public Use
  Company Number: 236241

PATIENT
  Age: 75 Year
  Sex: Male
  Weight: 82.1 kg

DRUGS (7)
  1. AVASTIN [Suspect]
     Indication: NON-SMALL CELL LUNG CANCER
     Dosage: 1200 MG, Q3W, INTRAVENOUS
     Route: 042
     Dates: start: 20061214
  2. TAXOL [Concomitant]
  3. CARBOPLATIN [Concomitant]
  4. ZANTAC [Concomitant]
  5. BENADRYL [Concomitant]
  6. DECADRON [Concomitant]
  7. ZOFRAN [Concomitant]

REACTIONS (1)
  - PULMONARY EMBOLISM [None]
